FAERS Safety Report 8807321 (Version 3)
Quarter: 2012Q4

REPORT INFORMATION
  Report Type: 
  Country: GB (occurrence: GB)
  Receive Date: 20120925
  Receipt Date: 20121130
  Transmission Date: 20130627
  Serious: Yes (Disabling, Other)
  Sender: FDA-Public Use
  Company Number: GB-WATSON-2012-16396

PATIENT
  Age: 35 Year
  Sex: Female
  Weight: 85 kg

DRUGS (4)
  1. CITALOPRAM HYDROBROMIDE (UNKNOWN) [Suspect]
     Indication: ANXIETY
     Dosage: Unknown
     Route: 048
     Dates: start: 2006
  2. CITALOPRAM HYDROBROMIDE (UNKNOWN) [Suspect]
     Indication: DEPRESSION
     Dosage: 20 mg, daily
     Route: 048
     Dates: start: 20110818, end: 201202
  3. CITALOPRAM HYDROBROMIDE (UNKNOWN) [Suspect]
     Dosage: 20 mg, daily
     Route: 048
     Dates: start: 201205, end: 201209
  4. DIAZEPAM [Concomitant]
     Indication: ANXIETY
     Dosage: 2x5mg up to three times daily as required
     Route: 048
     Dates: start: 20110818

REACTIONS (9)
  - Suicidal ideation [Unknown]
  - Weight increased [Not Recovered/Not Resolved]
  - Withdrawal syndrome [Unknown]
  - Menstrual disorder [Unknown]
  - Weight loss poor [Not Recovered/Not Resolved]
  - Gastrointestinal candidiasis [Unknown]
  - Insomnia [Unknown]
  - Fluid retention [Unknown]
  - Carbohydrate intolerance [Unknown]
